FAERS Safety Report 9336076 (Version 2)
Quarter: 2013Q3

REPORT INFORMATION
  Report Type: Spontaneous
  Country: CH (occurrence: CH)
  Receive Date: 20130607
  Receipt Date: 20130704
  Transmission Date: 20140515
  Serious: Yes (Hospitalization)
  Sender: FDA-Public Use
  Company Number: CH-BIOGENIDEC-2013BI049950

PATIENT
  Age: 70 Year
  Sex: Female

DRUGS (6)
  1. AVONEX [Suspect]
     Indication: MULTIPLE SCLEROSIS
     Route: 030
     Dates: start: 20120410
  2. ARLEVERT [Concomitant]
  3. CITALOPRAM [Concomitant]
  4. GABAPENTIN [Concomitant]
     Dates: start: 20121203, end: 20121217
  5. GABAPENTIN [Concomitant]
     Dates: start: 20121218
  6. GABAPENTIN [Concomitant]

REACTIONS (9)
  - Fall [Recovered/Resolved]
  - Adjustment disorder [Unknown]
  - Cognitive disorder [Unknown]
  - Gait disturbance [Unknown]
  - Vertigo [Unknown]
  - Frustration [Unknown]
  - Dizziness [Unknown]
  - Humerus fracture [Not Recovered/Not Resolved]
  - Asthenia [Unknown]
